FAERS Safety Report 6908836-X (Version None)
Quarter: 2010Q3

REPORT INFORMATION
  Report Type: 
  Country: None (occurrence: None)
  Receive Date: 20100805
  Receipt Date: 20100727
  Transmission Date: 20110219
  Serious: Yes (Disabling)
  Sender: FDA-Public Use
  Company Number: B0502305A

PATIENT
  Sex: Male
  Weight: 76 kg

DRUGS (5)
  1. NELARABINE [Suspect]
     Dosage: 1500MGM2 PER DAY
     Dates: start: 20070524, end: 20070625
  2. BACTRIM [Concomitant]
     Indication: INFECTION PROPHYLAXIS
     Dosage: 960MG TWO TIMES PER WEEK
     Route: 048
  3. CLEXANE [Concomitant]
     Dosage: 8000UNIT PER DAY
     Route: 058
  4. ZYLORIC [Concomitant]
     Dosage: 300MCG PER DAY
     Route: 048
     Dates: start: 20070621, end: 20070625
  5. MERCAPTOPURINE [Concomitant]
     Dates: start: 20060701, end: 20070301

REACTIONS (10)
  - AREFLEXIA [None]
  - ATAXIA [None]
  - GAIT DISTURBANCE [None]
  - NEUROLOGICAL SYMPTOM [None]
  - PARAESTHESIA [None]
  - PARAPLEGIA [None]
  - PERIPHERAL MOTOR NEUROPATHY [None]
  - PERIPHERAL SENSORY NEUROPATHY [None]
  - SENSORY LOSS [None]
  - SPINAL CORD ISCHAEMIA [None]
